FAERS Safety Report 21420451 (Version 1)
Quarter: 2022Q4

REPORT INFORMATION
  Report Type: Spontaneous
  Country: CN (occurrence: CN)
  Receive Date: 20221007
  Receipt Date: 20221007
  Transmission Date: 20230112
  Serious: Yes (Hospitalization)
  Sender: FDA-Public Use
  Company Number: None

PATIENT
  Age: 58 Year
  Sex: Female
  Weight: 62 kg

DRUGS (6)
  1. CYCLOPHOSPHAMIDE [Suspect]
     Active Substance: CYCLOPHOSPHAMIDE
     Indication: Breast cancer female
     Dosage: 1.0 G, Q21 DAYS, (DILUTED WITH 0.9% SODIUM CHLORIDE 250ML)
     Route: 041
     Dates: start: 20220910, end: 20220910
  2. SODIUM CHLORIDE [Suspect]
     Active Substance: SODIUM CHLORIDE
     Indication: Medication dilution
     Dosage: 250 ML, Q21 DAYS, (DILUTED IN 1.0 G CYCLOPHOSPHAMIDE)
     Route: 041
     Dates: start: 20220910, end: 20220910
  3. DEXTROSE MONOHYDRATE [Suspect]
     Active Substance: DEXTROSE MONOHYDRATE
     Indication: Medication dilution
     Dosage: 250 ML , Q21 DAYS, (DILUTED IN 50 MG DOXORUBICIN LIPOSOME)
     Route: 041
     Dates: start: 20220910, end: 20220910
  4. DOXORUBICIN HYDROCHLORIDE [Suspect]
     Active Substance: DOXORUBICIN HYDROCHLORIDE
     Indication: Breast cancer female
     Dosage: 50 MG, Q21 DAYS, (DILUTED WITH 5% GLUCOSE 250 ML)
     Route: 041
     Dates: start: 20220910, end: 20220910
  5. GLUTATHIONE [Concomitant]
     Active Substance: GLUTATHIONE
     Indication: Prophylaxis
     Dosage: 2.4 G, (DILUTED WITH 0.9% SODIUM CHLORIDE 250ML)
     Route: 042
     Dates: start: 20220909, end: 20220913
  6. SODIUM CHLORIDE [Concomitant]
     Active Substance: SODIUM CHLORIDE
     Indication: Medication dilution
     Dosage: 250ML, (DILUTED IN GLUTATHIONE)
     Route: 041
     Dates: start: 20220909, end: 20220913

REACTIONS (1)
  - Liver function test abnormal [Recovered/Resolved]

NARRATIVE: CASE EVENT DATE: 20220919
